FAERS Safety Report 5814795-3 (Version None)
Quarter: 2008Q3

REPORT INFORMATION
  Report Type: 
  Country: None (occurrence: None)
  Receive Date: 20080718
  Receipt Date: 20080715
  Transmission Date: 20090109
  Serious: Yes (Death, Hospitalization)
  Sender: FDA-Public Use
  Company Number: US-AMGEN-QUU294720

PATIENT
  Sex: Female

DRUGS (5)
  1. ARANESP [Suspect]
     Indication: ANAEMIA OF MALIGNANT DISEASE
     Dates: start: 20080428, end: 20080513
  2. ARANESP [Suspect]
  3. NEULASTA [Suspect]
     Indication: CHEMOTHERAPY
     Route: 065
     Dates: start: 20080318, end: 20080513
  4. CYTOXAN [Concomitant]
  5. TAXOTERE [Concomitant]

REACTIONS (1)
  - INTERSTITIAL LUNG DISEASE [None]
